FAERS Safety Report 9523931 (Version 1)
Quarter: 2013Q3

REPORT INFORMATION
  Report Type: Spontaneous
  Country: US (occurrence: None)
  Receive Date: 20130912
  Receipt Date: 20130912
  Transmission Date: 20140515
  Serious: No
  Sender: FDA-Public Use
  Company Number: None

PATIENT
  Age: 69 Year
  Sex: Female
  Weight: 75.75 kg

DRUGS (1)
  1. LEVOTHYROXINE [Suspect]
     Indication: HYPOTHYROIDISM
     Dosage: 112 MCG TABLET  ONE  QDAY  PO
     Route: 048
     Dates: start: 20110913, end: 20130729

REACTIONS (3)
  - Fatigue [None]
  - Alopecia [None]
  - Headache [None]
